FAERS Safety Report 26134665 (Version 1)
Quarter: 2025Q4

REPORT INFORMATION
  Report Type: Spontaneous
  Country: CN (occurrence: CN)
  Receive Date: 20251209
  Receipt Date: 20251209
  Transmission Date: 20260118
  Serious: Yes (Life-Threatening, Other)
  Sender: SOMERSET THERAPEUTICS, LLC
  Company Number: CN-MIT-25-75-CN-2025-SOM-LIT-00470

PATIENT
  Age: 43 Year
  Sex: Male

DRUGS (6)
  1. PEMETREXED DISODIUM [Suspect]
     Active Substance: PEMETREXED DISODIUM
     Indication: Lung adenocarcinoma
     Dosage: 1 CYCLE
     Route: 065
     Dates: start: 202311
  2. CARBOPLATIN [Suspect]
     Active Substance: CARBOPLATIN
     Indication: Lung adenocarcinoma
     Dosage: AREA UNDER CURVE (AUC) OF 5, 1 CYCLE
     Route: 065
     Dates: start: 202311
  3. BEVACIZUMAB [Suspect]
     Active Substance: BEVACIZUMAB
     Indication: Lung adenocarcinoma
     Dosage: 1 CYCLE
     Route: 065
     Dates: start: 202311
  4. TISLELIZUMAB [Suspect]
     Active Substance: TISLELIZUMAB
     Indication: Lung adenocarcinoma
     Dosage: 1 CYCLE
     Route: 065
     Dates: start: 202311
  5. AFATINIB [Concomitant]
     Active Substance: AFATINIB
     Route: 048
     Dates: start: 202307
  6. OSIMERTINIB [Concomitant]
     Active Substance: OSIMERTINIB
     Route: 048

REACTIONS (3)
  - Myelosuppression [Unknown]
  - Weight decreased [Unknown]
  - Rash pruritic [Unknown]
